FAERS Safety Report 23334659 (Version 3)
Quarter: 2024Q1

REPORT INFORMATION
  Report Type: Other
  Country: US (occurrence: US)
  Receive Date: 20231224
  Receipt Date: 20240210
  Transmission Date: 20240410
  Serious: No
  Sender: FDA-Public Use
  Company Number: US-TRAVERE-2023TVT00777

PATIENT
  Age: 24 Year
  Sex: Male

DRUGS (4)
  1. FILSPARI [Suspect]
     Active Substance: SPARSENTAN
     Indication: Proteinuria
     Route: 048
     Dates: start: 20231122
  2. FILSPARI [Suspect]
     Active Substance: SPARSENTAN
     Indication: Chronic kidney disease
     Route: 048
  3. FILSPARI [Suspect]
     Active Substance: SPARSENTAN
     Indication: Haematuria
  4. FILSPARI [Suspect]
     Active Substance: SPARSENTAN
     Indication: IgA nephropathy

REACTIONS (3)
  - COVID-19 [Unknown]
  - Proteinuria [Unknown]
  - Illness [Unknown]

NARRATIVE: CASE EVENT DATE: 20231226
